FAERS Safety Report 19503954 (Version 1)
Quarter: 2021Q3

REPORT INFORMATION
  Report Type: Spontaneous
  Country: NL (occurrence: NL)
  Receive Date: 20210707
  Receipt Date: 20210707
  Transmission Date: 20211014
  Serious: Yes (Life-Threatening, Hospitalization)
  Sender: FDA-Public Use
  Company Number: NL-TEVA-2021-NL-1928043

PATIENT
  Sex: Male
  Weight: 94.8 kg

DRUGS (1)
  1. ROSUVASTATINE TABLET 40MG / BRAND NAME NOT SPECIFIED [Suspect]
     Active Substance: ROSUVASTATIN
     Indication: PERCUTANEOUS CORONARY INTERVENTION
     Dosage: 1 DOSAGE FORMS DAILY; 1 X PER DAY 1 PIECE
     Dates: start: 2018, end: 20210531

REACTIONS (2)
  - Acute kidney injury [Recovering/Resolving]
  - Rhabdomyolysis [Recovering/Resolving]
